FAERS Safety Report 23835657 (Version 8)
Quarter: 2024Q3

REPORT INFORMATION
  Report Type: Spontaneous
  Country: US (occurrence: US)
  Receive Date: 20240509
  Receipt Date: 20240812
  Transmission Date: 20241017
  Serious: Yes (Hospitalization)
  Sender: ROCHE
  Company Number: US-ROCHE-3528902

PATIENT
  Age: 22 Year
  Sex: Female
  Weight: 49.44 kg

DRUGS (12)
  1. EVRYSDI [Suspect]
     Active Substance: RISDIPLAM
     Indication: Spinal muscular atrophy
     Route: 050
     Dates: start: 2022
  2. EVRYSDI [Suspect]
     Active Substance: RISDIPLAM
     Route: 048
     Dates: start: 202104
  3. PEPCID [Concomitant]
     Active Substance: FAMOTIDINE
     Route: 050
  4. PROVENTIL [Concomitant]
     Active Substance: ALBUTEROL
     Dosage: APPLY TO AFFECTED AREAS
     Route: 061
  5. PROVENTIL [Concomitant]
     Active Substance: ALBUTEROL
     Dosage: USE 1 VAIL EVERY 6 HOURS
     Route: 055
  6. FLONASE [Concomitant]
     Active Substance: FLUTICASONE PROPIONATE
     Dosage: USE 2 SPRAY N EACH NOSTRIL DAILY
     Route: 045
  7. ROBITUSSIN (GUAIFENESIN) [Concomitant]
     Active Substance: GUAIFENESIN
     Indication: Cough
     Route: 050
  8. MOTRIN [Concomitant]
     Active Substance: IBUPROFEN
     Route: 050
  9. PREVACID SOLUTAB [Concomitant]
     Active Substance: LANSOPRAZOLE
     Route: 050
  10. LORATADINE [Concomitant]
     Active Substance: LORATADINE
     Route: 050
  11. ZOFRAN [Concomitant]
     Active Substance: ONDANSETRON HYDROCHLORIDE
  12. SIMETHICONE (DIMETHICONE) [Concomitant]
     Active Substance: DIMETHICONE
     Route: 050

REACTIONS (4)
  - Pulmonary thrombosis [Recovered/Resolved]
  - Pneumonia aspiration [Unknown]
  - Haemoptysis [Unknown]
  - Vomiting [Unknown]

NARRATIVE: CASE EVENT DATE: 20230818
